FAERS Safety Report 17387224 (Version 1)
Quarter: 2020Q1

REPORT INFORMATION
  Report Type: Spontaneous
  Country: US (occurrence: US)
  Receive Date: 20200122
  Receipt Date: 20200122
  Transmission Date: 20200409
  Serious: Yes (Hospitalization)
  Sender: FDA-Public Use
  Company Number: None

PATIENT
  Age: 29 Year
  Sex: Female

DRUGS (12)
  1. NEUPOGEN [Suspect]
     Active Substance: FILGRASTIM
     Dosage: ?          OTHER DOSE:300 MCG/0.5ML SYR;OTHER FREQUENCY:1 DAILY;?
     Route: 030
     Dates: start: 20191220
  2. LEVOFLOXACIN. [Concomitant]
     Active Substance: LEVOFLOXACIN
  3. ACYCLOVIR. [Concomitant]
     Active Substance: ACYCLOVIR
  4. FOLIC ACID. [Concomitant]
     Active Substance: FOLIC ACID
  5. ONDANSETRON [Concomitant]
     Active Substance: ONDANSETRON
  6. PROCHLORPER [Concomitant]
  7. CIPROFLOXACN. [Concomitant]
  8. VITAMIN B12 [Concomitant]
     Active Substance: CYANOCOBALAMIN
  9. ALLOPURINOL. [Concomitant]
     Active Substance: ALLOPURINOL
  10. FLUCONAZOLE. [Concomitant]
     Active Substance: FLUCONAZOLE
  11. DEXAMETHASON [Concomitant]
     Active Substance: DEXAMETHASONE
  12. PROCHLORPER [Concomitant]

REACTIONS (1)
  - Surgery [None]

NARRATIVE: CASE EVENT DATE: 20200122
